FAERS Safety Report 9478653 (Version 1)
Quarter: 2013Q3

REPORT INFORMATION
  Report Type: Spontaneous
  Country: US (occurrence: None)
  Receive Date: 20130822
  Receipt Date: 20130822
  Transmission Date: 20140515
  Serious: Yes (Hospitalization)
  Sender: FDA-Public Use
  Company Number: DSU-2013-04307

PATIENT
  Age: 54 Year
  Sex: Female
  Weight: 104.78 kg

DRUGS (1)
  1. BENICAR HCT [Suspect]
     Indication: HYPERTENSION
     Route: 048
     Dates: start: 2008, end: 2013

REACTIONS (2)
  - Swelling [None]
  - Palpitations [None]
